FAERS Safety Report 17827098 (Version 1)
Quarter: 2020Q2

REPORT INFORMATION
  Report Type: Spontaneous
  Country: GB (occurrence: GB)
  Receive Date: 20200526
  Receipt Date: 20200526
  Transmission Date: 20200714
  Serious: Yes (Other)
  Sender: FDA-Public Use
  Company Number: GB-BRISTOL-MYERS SQUIBB COMPANY-BMS-2020-041177

PATIENT
  Age: 84 Year
  Sex: Female
  Weight: 86 kg

DRUGS (2)
  1. APIXABAN [Suspect]
     Active Substance: APIXABAN
     Indication: CEREBROVASCULAR ACCIDENT PROPHYLAXIS
     Dosage: 10 MILLIGRAM, PER DAY
     Route: 048
     Dates: start: 20200421, end: 20200518
  2. EDOXABAN [Concomitant]
     Active Substance: EDOXABAN TOSYLATE
     Indication: ATRIAL FIBRILLATION
     Dosage: 60 MILLIGRAM, PER DAY
     Route: 065
     Dates: start: 20200518

REACTIONS (1)
  - Hallucination, visual [Not Recovered/Not Resolved]
